FAERS Safety Report 9130964 (Version 1)
Quarter: 2013Q1

REPORT INFORMATION
  Report Type: Spontaneous
  Country: GB (occurrence: GB)
  Receive Date: 20130301
  Receipt Date: 20130301
  Transmission Date: 20140127
  Serious: Yes (Other)
  Sender: FDA-Public Use
  Company Number: GB-JNJFOC-20130214205

PATIENT
  Age: 3 Decade
  Sex: Female

DRUGS (7)
  1. DOXORUBICIN [Suspect]
     Indication: UNDIFFERENTIATED SARCOMA
     Dosage: ADMINISTERTED OVER 2 DAYS FOR 14 DAY CYCLE, DISCONTINUED IN CYCLE 11
     Route: 042
  2. VINCRISTINE [Suspect]
     Indication: UNDIFFERENTIATED SARCOMA
     Dosage: 50% DOSE REDUCTION AT CYCLE 3, OMISSION AT CYCLE 4, DISCONTINUATION AT CYCLE 11
     Route: 065
  3. VINCRISTINE [Suspect]
     Indication: UNDIFFERENTIATED SARCOMA
     Dosage: 1.4 MG/M2, MAXIMUM DOSE OF 2 MG
     Route: 065
  4. CYCLOPHOSPHAMIDE [Suspect]
     Indication: UNDIFFERENTIATED SARCOMA
     Dosage: ADMINISTERTED OVER 2 DAYS OF 14 DAY CYCLE,  DISCONTINUED IN CYCLE 11
     Route: 065
  5. IFOSFAMIDE [Suspect]
     Indication: UNDIFFERENTIATED SARCOMA
     Dosage: FRACTIONATED OVER 5 DAYS. AT CYCLE 11, DISCONTINUED
     Route: 065
  6. ETOPOSIDE [Suspect]
     Indication: UNDIFFERENTIATED SARCOMA
     Dosage: FRACTIONATED OVER 5 DAYS.DISCONTINUED IN CYCLE 11.
     Route: 065
  7. GRANULOCYTE COLONY-STIMULATING FACTOR (GCSF) [Concomitant]
     Indication: PALLIATIVE CARE
     Route: 065

REACTIONS (4)
  - Neuropathy peripheral [Recovering/Resolving]
  - Haematotoxicity [Unknown]
  - Fatigue [Unknown]
  - Off label use [Unknown]
